FAERS Safety Report 5149434-0 (Version None)
Quarter: 2006Q4

REPORT INFORMATION
  Report Type: 
  Country: None (occurrence: None)
  Receive Date: 20061113
  Receipt Date: 20060113
  Transmission Date: 20070319
  Serious: No
  Sender: FDA-Public Use
  Company Number: 432240

PATIENT
  Age: 56 Year
  Sex: Male

DRUGS (2)
  1. COREG [Suspect]
     Indication: OBSTRUCTION
     Dosage: 3.125MG TWICE PER DAY
     Route: 048
  2. PRILOSEC [Concomitant]

REACTIONS (4)
  - BALANCE DISORDER [None]
  - DIZZINESS [None]
  - DYSPNOEA [None]
  - FATIGUE [None]
